FAERS Safety Report 9209350 (Version 1)
Quarter: 2013Q1

REPORT INFORMATION
  Report Type: Spontaneous
  Country: US (occurrence: None)
  Receive Date: 20120820
  Receipt Date: 20120820
  Transmission Date: 20140127
  Serious: No
  Sender: FDA-Public Use
  Company Number: 1000036812

PATIENT
  Age: 20 Year
  Sex: Female

DRUGS (4)
  1. VIIBRYD (VILAZODONE) [Suspect]
     Indication: DEPRESSION
  2. VIIBRYD (VILAZODONE) [Suspect]
     Indication: ANXIETY
  3. VIIBRYD (VILAZODONE) [Suspect]
     Indication: DEPRESSION
  4. VIIBRYD (VILAZODONE) [Suspect]
     Indication: ANXIETY

REACTIONS (2)
  - Feeling abnormal [None]
  - Nausea [None]
